FAERS Safety Report 14981206 (Version 3)
Quarter: 2018Q2

REPORT INFORMATION
  Report Type: Spontaneous
  Country: NL (occurrence: NL)
  Receive Date: 20180606
  Receipt Date: 20180615
  Transmission Date: 20180711
  Serious: Yes (Other)
  Sender: FDA-Public Use
  Company Number: NL-TAKEDA-2018MPI006937

PATIENT
  Age: 69 Year
  Sex: Male
  Weight: 107 kg

DRUGS (3)
  1. COTRIMOXAZOLE [Concomitant]
     Active Substance: SULFAMETHOXAZOLE\TRIMETHOPRIM
     Dosage: UNK
     Route: 065
  2. FLUCONAZOL [Concomitant]
     Active Substance: FLUCONAZOLE
     Dosage: UNK
     Route: 065
  3. BORTEZOMIB [Suspect]
     Active Substance: BORTEZOMIB
     Indication: PLASMA CELL MYELOMA
     Dosage: UNK
     Route: 042
     Dates: start: 20170501, end: 20170601

REACTIONS (7)
  - Apathy [Recovering/Resolving]
  - Neuropathy peripheral [Recovering/Resolving]
  - Tendonitis [Recovering/Resolving]
  - Balance disorder [Recovering/Resolving]
  - Gait inability [Recovering/Resolving]
  - Eye inflammation [Recovering/Resolving]
  - Hypotension [Recovering/Resolving]

NARRATIVE: CASE EVENT DATE: 20170522
